FAERS Safety Report 9300464 (Version 1)
Quarter: 2012Q4

REPORT INFORMATION
  Report Type: Spontaneous
  Country: RU (occurrence: None)
  Receive Date: 20121113
  Receipt Date: 20121113
  Transmission Date: 20130627
  Serious: Yes (Life-Threatening, Hospitalization, Disabling, Other)
  Sender: FDA-Public Use
  Company Number: VAL_00963_2012

PATIENT
  Age: 75 Year
  Sex: Male
  Weight: 79.2 kg

DRUGS (6)
  1. METOPROLOL (METOPROLOL-METOPROLOL TARTRATE) [Suspect]
     Route: 048
     Dates: start: 20090915, end: 20120417
  2. METOPROLOL (METOPROLOL-METOPROLOL TARTRATE) [Suspect]
     Route: 048
     Dates: start: 20120418, end: 20120609
  3. METOPROLOL (METOPROLOL-METOPROLOL TARTRATE) [Suspect]
     Route: 048
     Dates: start: 2012, end: 2012
  4. ALISKIREN VS PLACEBO (ALISKIREN ALI+TAB+CF) [Suspect]
     Dosage: (DF)
     Route: 048
     Dates: start: 20110801, end: 20120613
  5. ALISKIREN VS PLACEBO (ALISKIREN ALI+TAB+CF) [Suspect]
  6. ENALAPRIL [Concomitant]

REACTIONS (5)
  - Adenocarcinoma of colon [None]
  - Coronary artery disease [None]
  - Cardiac failure acute [None]
  - Disease progression [None]
  - Pulmonary congestion [None]
